FAERS Safety Report 7367580-8 (Version None)
Quarter: 2011Q1

REPORT INFORMATION
  Report Type: 
  Country: None (occurrence: None)
  Receive Date: 20110322
  Receipt Date: 20110307
  Transmission Date: 20110831
  Serious: Yes (Hospitalization)
  Sender: FDA-Public Use
  Company Number: BE-GENENTECH-312244

PATIENT
  Sex: Male
  Weight: 66 kg

DRUGS (12)
  1. PREDNISONE [Suspect]
     Dosage: 100 MG, UNK
     Route: 048
     Dates: start: 20110203
  2. VINCRISTINE [Suspect]
     Dosage: 2 MG, UNK
     Route: 042
     Dates: start: 20110203
  3. RITUXIMAB [Suspect]
     Dosage: 700 MG, UNK
     Route: 042
     Dates: start: 20110203
  4. CYCLOPHOSPHAMIDE [Suspect]
     Dosage: 1313 MG, UNK
     Route: 042
     Dates: start: 20110203
  5. CYCLOPHOSPHAMIDE [Suspect]
     Indication: DIFFUSE LARGE B-CELL LYMPHOMA
     Dosage: 1343 MG, UNK
     Route: 042
     Dates: start: 20101230
  6. PREDNISONE [Suspect]
     Indication: DIFFUSE LARGE B-CELL LYMPHOMA
     Dosage: L
     Route: 048
     Dates: start: 20101230
  7. DOXORUBICIN [Suspect]
     Indication: DIFFUSE LARGE B-CELL LYMPHOMA
     Dosage: 89.5 MG, UNK
     Route: 042
     Dates: start: 20101230
  8. VINCRISTINE [Suspect]
     Indication: DIFFUSE LARGE B-CELL LYMPHOMA
     Dosage: 2 MG, UNK
     Route: 042
     Dates: start: 20101230
  9. NEUPOGEN [Suspect]
     Dosage: 6 MG, UNK
     Route: 058
     Dates: start: 20110207
  10. RITUXIMAB [Suspect]
     Indication: DIFFUSE LARGE B-CELL LYMPHOMA
     Dosage: 672 MG, UNK
     Route: 042
     Dates: start: 20101230
  11. DOXORUBICIN [Suspect]
     Dosage: 89 MG, UNK
     Route: 042
     Dates: start: 20110203
  12. NEUPOGEN [Suspect]
     Indication: DIFFUSE LARGE B-CELL LYMPHOMA
     Dosage: 6 MG, UNK
     Route: 058
     Dates: start: 20101231

REACTIONS (2)
  - PULMONARY EMBOLISM [None]
  - FEBRILE NEUTROPENIA [None]
